FAERS Safety Report 4311934-0 (Version None)
Quarter: 2004Q1

REPORT INFORMATION
  Report Type: 
  Country: None (occurrence: None)
  Receive Date: 20040303
  Receipt Date: 20040224
  Transmission Date: 20041129
  Serious: No
  Sender: FDA-Public Use
  Company Number: 04H-082-0251186-00

PATIENT
  Sex: 0

DRUGS (4)
  1. HEPARIN SODIUM [Suspect]
     Indication: ANTICOAGULANT THERAPY
     Dosage: INTRAVENOUS
     Route: 042
  2. ACETYLSALICYLIC ACID SRT [Concomitant]
  3. CARDIOPLEGIA [Concomitant]
  4. BLOOD AND RELATED PRODUCTS [Concomitant]

REACTIONS (1)
  - POSTOPERATIVE INFECTION [None]
